FAERS Safety Report 7524741-2 (Version None)
Quarter: 2011Q2

REPORT INFORMATION
  Report Type: 
  Country: None (occurrence: None)
  Receive Date: 20110606
  Receipt Date: 20110124
  Transmission Date: 20111010
  Serious: Yes (Hospitalization, Other)
  Sender: FDA-Public Use
  Company Number: US-BAYER-201021841NA

PATIENT
  Age: 27 Year
  Sex: Female
  Weight: 86.168 kg

DRUGS (4)
  1. YAZ [Suspect]
     Route: 048
  2. NEXIUM [Concomitant]
     Indication: PREMENSTRUAL SYNDROME
     Dosage: UNK
     Dates: start: 20070101, end: 20080301
  3. BUSPAR [Concomitant]
  4. PHENERGAN HCL [Concomitant]

REACTIONS (6)
  - ABDOMINAL PAIN UPPER [None]
  - CHOLECYSTECTOMY [None]
  - VOMITING [None]
  - DIARRHOEA [None]
  - CHOLESTEROSIS [None]
  - CHOLECYSTITIS CHRONIC [None]
